FAERS Safety Report 25518279 (Version 1)
Quarter: 2025Q3

REPORT INFORMATION
  Report Type: Report from Study
  Country: US (occurrence: US)
  Receive Date: 20250704
  Receipt Date: 20250704
  Transmission Date: 20251021
  Serious: Yes (Other)
  Sender: ABBVIE
  Company Number: US-ABBVIE-6355290

PATIENT
  Sex: Male

DRUGS (2)
  1. VENCLEXTA [Suspect]
     Active Substance: VENETOCLAX
     Indication: Acute myeloid leukaemia
     Dosage: FOR 28 DAYS IN A 28 DAY CYCLE FOR THE LATEST CYCLE.
     Route: 048
     Dates: start: 20240415, end: 20250508
  2. AZACITIDINE [Concomitant]
     Active Substance: AZACITIDINE
     Indication: Acute myeloid leukaemia
     Dates: start: 20240415

REACTIONS (3)
  - Adverse event [Unknown]
  - Acute myeloid leukaemia [Unknown]
  - Toxicity to various agents [Unknown]
